FAERS Safety Report 18851847 (Version 1)
Quarter: 2021Q1

REPORT INFORMATION
  Report Type: Spontaneous
  Country: AU (occurrence: AU)
  Receive Date: 20210205
  Receipt Date: 20210205
  Transmission Date: 20210420
  Serious: Yes (Other)
  Sender: FDA-Public Use
  Company Number: AU-GLAXOSMITHKLINE-AUCH2021APC003057

PATIENT
  Age: 32 Year
  Sex: Female

DRUGS (2)
  1. PARACETAMOL [Suspect]
     Active Substance: ACETAMINOPHEN
     Indication: PRODUCT USED FOR UNKNOWN INDICATION
     Dosage: UNK
  2. IBUPROFEN. [Suspect]
     Active Substance: IBUPROFEN
     Indication: PRODUCT USED FOR UNKNOWN INDICATION
     Dosage: UNK

REACTIONS (9)
  - Pyroglutamate increased [Unknown]
  - Intentional product misuse [Unknown]
  - Gastric ulcer perforation [Unknown]
  - Respiratory rate increased [Unknown]
  - Drug ineffective [Unknown]
  - Intentional overdose [Unknown]
  - Metabolic acidosis [Unknown]
  - Glutathione decreased [Unknown]
  - Analgesic drug level above therapeutic [Unknown]
